FAERS Safety Report 14564137 (Version 2)
Quarter: 2018Q2

REPORT INFORMATION
  Report Type: Spontaneous
  Country: US (occurrence: US)
  Receive Date: 20180222
  Receipt Date: 20180402
  Transmission Date: 20180711
  Serious: No
  Sender: FDA-Public Use
  Company Number: US-GE HEALTHCARE LIFE SCIENCES-2018CSU000408

PATIENT
  Age: 54 Year
  Sex: Female
  Weight: 82.1 kg

DRUGS (2)
  1. OMNIPAQUE [Suspect]
     Active Substance: IOHEXOL
     Indication: ANEURYSM
     Dosage: 50 ML, SINGLE
     Route: 042
     Dates: start: 20180123, end: 20180123
  2. OMNIPAQUE [Suspect]
     Active Substance: IOHEXOL
     Indication: ANEURYSM
     Dosage: 30 ML, SINGLE
     Route: 042
     Dates: start: 20180123, end: 20180123

REACTIONS (2)
  - Pain [Recovered/Resolved]
  - Chills [Recovered/Resolved]

NARRATIVE: CASE EVENT DATE: 20180123
